FAERS Safety Report 7349455-3 (Version None)
Quarter: 2011Q1

REPORT INFORMATION
  Report Type: 
  Country: None (occurrence: None)
  Receive Date: 20110314
  Receipt Date: 20110113
  Transmission Date: 20110831
  Serious: No
  Sender: FDA-Public Use
  Company Number: US-ABBOTT-11P-163-0697898-00

PATIENT
  Sex: Female

DRUGS (3)
  1. DEPAKOTE ER [Suspect]
     Indication: MIGRAINE
  2. DEPAKOTE [Suspect]
     Indication: MIGRAINE
  3. DEPAKOTE [Suspect]
     Indication: MIGRAINE

REACTIONS (1)
  - MIGRAINE [None]
